FAERS Safety Report 9292208 (Version 2)
Quarter: 2013Q3

REPORT INFORMATION
  Report Type: Spontaneous
  Country: BR (occurrence: BR)
  Receive Date: 20130516
  Receipt Date: 20130816
  Transmission Date: 20140515
  Serious: Yes (Other)
  Sender: FDA-Public Use
  Company Number: BR-ELI_LILLY_AND_COMPANY-BR201305002033

PATIENT
  Age: 72 Year
  Sex: Female

DRUGS (5)
  1. CYMBALTA [Suspect]
     Indication: PAIN
     Dosage: 30 MG, QD
     Route: 048
     Dates: start: 20130503, end: 20130503
  2. RISEDRONATE SODIUM [Concomitant]
     Dosage: UNK, UNKNOWN
     Route: 065
  3. VIMOVO [Concomitant]
     Dosage: UNK, UNKNOWN
     Route: 065
  4. ULTRACET [Concomitant]
     Dosage: UNK, UNKNOWN
     Route: 065
  5. ALPRAZOLAM [Concomitant]
     Dosage: UNK, UNKNOWN
     Route: 065

REACTIONS (6)
  - Arrhythmia [Recovered/Resolved]
  - Aphagia [Recovered/Resolved]
  - Intentional drug misuse [Unknown]
  - Gallbladder polyp [Unknown]
  - Feeling abnormal [Recovered/Resolved]
  - Nausea [Recovered/Resolved]
